FAERS Safety Report 20053352 (Version 1)
Quarter: 2021Q4

REPORT INFORMATION
  Report Type: Spontaneous
  Country: US (occurrence: None)
  Receive Date: 20211109
  Receipt Date: 20211109
  Transmission Date: 20220303
  Serious: Yes (Hospitalization)
  Sender: FDA-Public Use
  Company Number: None

PATIENT
  Sex: Female

DRUGS (3)
  1. TADALAFIL [Suspect]
     Active Substance: TADALAFIL
     Dosage: FREQUENCY : TWICE A DAY;?
     Route: 048
     Dates: start: 20200208
  2. FUROSEMIDE TAB [Concomitant]
  3. LASIX TAB [Concomitant]

REACTIONS (1)
  - Fluid retention [None]
